FAERS Safety Report 6388542-3 (Version None)
Quarter: 2009Q4

REPORT INFORMATION
  Report Type: 
  Country: None (occurrence: None)
  Receive Date: 20091001
  Receipt Date: 20091001
  Transmission Date: 20100525
  Serious: Yes (Other)
  Sender: FDA-Public Use
  Company Number: None

PATIENT
  Age: 19 Year
  Sex: Female
  Weight: 911.2764 kg

DRUGS (5)
  1. YAZ [Suspect]
     Indication: MENORRHAGIA
     Dosage: DAILY PO
     Route: 048
     Dates: start: 20081222, end: 20090930
  2. TREXIMET [Concomitant]
  3. YAZ [Concomitant]
  4. DOLGIC PULS [Concomitant]
  5. XYZAL [Concomitant]

REACTIONS (10)
  - AMENORRHOEA [None]
  - ANGINA PECTORIS [None]
  - ARRHYTHMIA [None]
  - BRADYCARDIA [None]
  - CARDIAC DISORDER [None]
  - HEART RATE IRREGULAR [None]
  - MENSTRUAL DISORDER [None]
  - MENSTRUATION IRREGULAR [None]
  - METRORRHAGIA [None]
  - TACHYCARDIA [None]
